FAERS Safety Report 10482649 (Version 9)
Quarter: 2021Q2

REPORT INFORMATION
  Report Type: Report from Study
  Country: JP (occurrence: JP)
  Receive Date: 20140929
  Receipt Date: 20210514
  Transmission Date: 20210716
  Serious: Yes (Life-Threatening, Hospitalization)
  Sender: FDA-Public Use
  Company Number: JP-PFIZER INC-2014268167

PATIENT
  Age: 57 Year
  Sex: Female
  Weight: 46 kg

DRUGS (11)
  1. REBAMIPIDE [Concomitant]
     Active Substance: REBAMIPIDE
     Dosage: UNK
     Route: 048
     Dates: start: 20090314
  2. XELJANZ [Suspect]
     Active Substance: TOFACITINIB CITRATE
     Indication: RHEUMATOID VASCULITIS
     Dosage: 5 MG, 1X/DAY
     Route: 048
     Dates: start: 20140822, end: 20140909
  3. LOXONIN [Concomitant]
     Active Substance: LOXOPROFEN SODIUM
     Dosage: UNK
     Route: 048
     Dates: start: 20090314
  4. SELTOUCH [Concomitant]
     Active Substance: FELBINAC
     Dosage: UNK
     Route: 062
     Dates: start: 20110530
  5. ALOSITOL [Concomitant]
     Active Substance: ALLOPURINOL
     Dosage: UNK
     Route: 048
     Dates: start: 20070828
  6. LUPRAC [Concomitant]
     Active Substance: TORSEMIDE
     Dosage: UNK
     Route: 048
     Dates: start: 20070828
  7. PREDONINE [Suspect]
     Active Substance: PREDNISOLONE
     Dosage: 10 MG, DAILY
     Route: 048
     Dates: start: 20030926
  8. ALLEGRA [Concomitant]
     Active Substance: FEXOFENADINE HYDROCHLORIDE
     Dosage: UNK
     Route: 048
     Dates: start: 20070828
  9. FAMOTIDINE D [Concomitant]
     Active Substance: FAMOTIDINE
     Dosage: UNK
     Route: 048
     Dates: start: 20050926
  10. DORNER [Concomitant]
     Active Substance: BERAPROST SODIUM
     Dosage: UNK
     Route: 048
     Dates: start: 20050926
  11. AMLODIPINE [Concomitant]
     Active Substance: AMLODIPINE BESYLATE
     Dosage: UNK
     Route: 048
     Dates: start: 20140822

REACTIONS (5)
  - Bone abscess [Recovering/Resolving]
  - Sepsis [Recovered/Resolved with Sequelae]
  - Pyrexia [Recovering/Resolving]
  - Acute kidney injury [Recovered/Resolved with Sequelae]
  - Disseminated intravascular coagulation [Recovering/Resolving]

NARRATIVE: CASE EVENT DATE: 20140909
